FAERS Safety Report 22706489 (Version 3)
Quarter: 2023Q4

REPORT INFORMATION
  Report Type: Spontaneous
  Country: US (occurrence: US)
  Receive Date: 20230714
  Receipt Date: 20231214
  Transmission Date: 20240110
  Serious: Yes (Other)
  Sender: FDA-Public Use
  Company Number: US-BRISTOL-MYERS SQUIBB COMPANY-2023-099465

PATIENT
  Age: 76 Year
  Sex: Female

DRUGS (2)
  1. LENALIDOMIDE [Suspect]
     Active Substance: LENALIDOMIDE
     Indication: Plasma cell myeloma
     Dosage: FREQUENCY: TAKE 1 WHOLE CAPSULE BY MOUTH EVERY MORNING ON DAYS 1-14 THEN 7
     Route: 048
     Dates: start: 20230516
  2. LENALIDOMIDE [Suspect]
     Active Substance: LENALIDOMIDE
     Dosage: FREQUENCY: TAKE 1 CAPSULE BY MOUTH EVERY MORNING FOR 21 DAYS, THEN OFF FOR 7 DAYS. TAKE WHOLE W/ WAT
     Route: 048
     Dates: end: 202311

REACTIONS (2)
  - Off label use [Unknown]
  - Thrombocytopenia [Recovering/Resolving]
